FAERS Safety Report 14152420 (Version 1)
Quarter: 2017Q4

REPORT INFORMATION
  Report Type: Spontaneous
  Country: US (occurrence: US)
  Receive Date: 20171102
  Receipt Date: 20171102
  Transmission Date: 20180321
  Serious: No
  Sender: FDA-Public Use
  Company Number: US-ASTRAZENECA-2017SF08445

PATIENT
  Sex: Female

DRUGS (1)
  1. CRESTOR [Suspect]
     Active Substance: ROSUVASTATIN CALCIUM
     Dosage: UNKNOWN DOSE AND FREQUENCY
     Route: 048

REACTIONS (2)
  - Ill-defined disorder [Unknown]
  - Chronic obstructive pulmonary disease [Unknown]
